FAERS Safety Report 6356697-2 (Version None)
Quarter: 2009Q3

REPORT INFORMATION
  Report Type: 
  Country: None (occurrence: None)
  Receive Date: 20090915
  Receipt Date: 20090901
  Transmission Date: 20100115
  Serious: Yes (Hospitalization)
  Sender: FDA-Public Use
  Company Number: GB-BAYER-200931856GPV

PATIENT
  Age: 64 Year
  Sex: Female

DRUGS (13)
  1. ALEVE [Suspect]
     Indication: DRUG USE FOR UNKNOWN INDICATION
     Route: 065
  2. MAGNESIUM OXIDE [Suspect]
     Indication: DRUG USE FOR UNKNOWN INDICATION
     Route: 065
  3. OXYCONTIN [Suspect]
     Indication: DRUG USE FOR UNKNOWN INDICATION
     Route: 065
  4. BEVACIZUMAB [Suspect]
     Indication: OVARIAN CANCER
     Route: 042
     Dates: start: 20090617
  5. PACLITAXEL [Suspect]
     Indication: OVARIAN CANCER
     Route: 042
     Dates: start: 20090617
  6. CARBOPLATIN [Suspect]
     Indication: OVARIAN CANCER
     Route: 042
     Dates: start: 20090708
  7. ATIVAN [Suspect]
     Indication: DRUG USE FOR UNKNOWN INDICATION
     Route: 065
  8. AVALIDE [Suspect]
     Indication: DRUG USE FOR UNKNOWN INDICATION
     Route: 065
  9. AVANDAMET [Suspect]
     Indication: DRUG USE FOR UNKNOWN INDICATION
     Route: 065
  10. COUMADIN [Suspect]
     Indication: DRUG USE FOR UNKNOWN INDICATION
     Route: 065
  11. GLIPIZIDE [Suspect]
     Indication: DRUG USE FOR UNKNOWN INDICATION
     Route: 065
  12. L-CARNITINE [Suspect]
     Indication: DRUG USE FOR UNKNOWN INDICATION
     Route: 065
  13. LIPITOR [Suspect]
     Indication: DRUG USE FOR UNKNOWN INDICATION
     Route: 065

REACTIONS (3)
  - DYSPNOEA [None]
  - FATIGUE [None]
  - RECTAL HAEMORRHAGE [None]
